FAERS Safety Report 9018403 (Version 1)
Quarter: 2013Q1

REPORT INFORMATION
  Report Type: Spontaneous
  Country: IL (occurrence: IL)
  Receive Date: 20130118
  Receipt Date: 20130118
  Transmission Date: 20140127
  Serious: Yes (Life-Threatening, Other)
  Sender: FDA-Public Use
  Company Number: PHHY2013IL004519

PATIENT
  Sex: Male

DRUGS (1)
  1. VOLTAREN [Suspect]

REACTIONS (2)
  - Anaphylactic shock [Unknown]
  - Nasal polyps [Unknown]
